FAERS Safety Report 6271187-3 (Version None)
Quarter: 2009Q3

REPORT INFORMATION
  Report Type: 
  Country: None (occurrence: None)
  Receive Date: 20090717
  Receipt Date: 20090709
  Transmission Date: 20100115
  Serious: Yes (Hospitalization)
  Sender: FDA-Public Use
  Company Number: US-BIOGENIDEC-2009BI019861

PATIENT
  Age: 45 Year
  Sex: Male
  Weight: 95 kg

DRUGS (3)
  1. AVONEX [Suspect]
     Indication: MULTIPLE SCLEROSIS
     Route: 030
     Dates: start: 20010101, end: 20050101
  2. AVONEX [Suspect]
     Route: 030
     Dates: start: 20050317, end: 20050501
  3. AVONEX [Suspect]
     Route: 030
     Dates: start: 20050501

REACTIONS (5)
  - ANAEMIA [None]
  - CHILLS [None]
  - DELAYED RECOVERY FROM ANAESTHESIA [None]
  - GALLBLADDER DISORDER [None]
  - HYPOTENSION [None]
